FAERS Safety Report 15538238 (Version 1)
Quarter: 2018Q4

REPORT INFORMATION
  Report Type: Spontaneous
  Country: IT (occurrence: IT)
  Receive Date: 20181022
  Receipt Date: 20181022
  Transmission Date: 20190205
  Serious: Yes (Other)
  Sender: FDA-Public Use
  Company Number: IT-PFIZER INC-2018424595

PATIENT
  Age: 67 Year
  Sex: Female

DRUGS (12)
  1. ALMARYTM [Concomitant]
     Active Substance: FLECAINIDE ACETATE
  2. MOVICOL [Concomitant]
     Active Substance: POLYETHYLENE GLYCOL 3350\POTASSIUM CHLORIDE\SODIUM BICARBONATE\SODIUM CHLORIDE
  3. TWICE [Concomitant]
  4. XANAX [Concomitant]
     Active Substance: ALPRAZOLAM
  5. IBRANCE [Suspect]
     Active Substance: PALBOCICLIB
     Indication: BREAST CANCER
     Dosage: 125 MG, 1X/DAY
     Route: 048
     Dates: start: 20171221, end: 20180720
  6. LEVOPRAID [LEVOSULPIRIDE] [Concomitant]
  7. PURSENNIDE [SENNOSIDE A+B] [Concomitant]
  8. FASLODEX [Concomitant]
     Active Substance: FULVESTRANT
  9. LANSOPRAZOLE. [Concomitant]
     Active Substance: LANSOPRAZOLE
  10. STILNOX [Concomitant]
     Active Substance: ZOLPIDEM TARTRATE
  11. DEXAMETHASONE. [Concomitant]
     Active Substance: DEXAMETHASONE
  12. ACIDO ZOLEDRONICO MYLAN [Concomitant]

REACTIONS (4)
  - Hyperpyrexia [Unknown]
  - Neutropenia [Unknown]
  - Asthenia [Unknown]
  - Anaemia [Unknown]

NARRATIVE: CASE EVENT DATE: 20180109
